FAERS Safety Report 15599325 (Version 2)
Quarter: 2018Q4

REPORT INFORMATION
  Report Type: Spontaneous
  Country: IT (occurrence: IT)
  Receive Date: 20181108
  Receipt Date: 20181108
  Transmission Date: 20190205
  Serious: Yes (Other)
  Sender: FDA-Public Use
  Company Number: PHHY2018IT149067

PATIENT
  Age: 66 Year
  Sex: Female

DRUGS (3)
  1. VOLTAREN [Suspect]
     Active Substance: DICLOFENAC SODIUM
     Indication: NECK PAIN
     Dosage: 1 ?G/L, UNK
     Route: 030
     Dates: start: 20180706
  2. OKI [Suspect]
     Active Substance: KETOPROFEN LYSINE
     Indication: NECK PAIN
     Dosage: 1 ?G/L, UNK
     Route: 048
     Dates: start: 20180706
  3. ACETYLSALICYLIC ACID [Suspect]
     Active Substance: ASPIRIN
     Indication: PROPHYLAXIS
     Dosage: 1 ?G/L, QD
     Route: 048

REACTIONS (3)
  - Dysphagia [Unknown]
  - Gastritis erosive [Unknown]
  - Gastric ulcer [Unknown]

NARRATIVE: CASE EVENT DATE: 20180707
